FAERS Safety Report 6326798-3 (Version None)
Quarter: 2009Q3

REPORT INFORMATION
  Report Type: 
  Country: None (occurrence: None)
  Receive Date: 20090825
  Receipt Date: 20090814
  Transmission Date: 20100115
  Serious: Yes (Other)
  Sender: FDA-Public Use
  Company Number: US-ROCHE-650708

PATIENT
  Sex: Female
  Weight: 49.9 kg

DRUGS (1)
  1. XELODA [Suspect]
     Indication: BREAST CANCER
     Dosage: I TABLET BID
     Route: 048
     Dates: start: 20080716, end: 20090801

REACTIONS (1)
  - METASTASES TO KIDNEY [None]
